FAERS Safety Report 20254935 (Version 6)
Quarter: 2022Q2

REPORT INFORMATION
  Report Type: Report from Study
  Country: US (occurrence: US)
  Receive Date: 20211230
  Receipt Date: 20220621
  Transmission Date: 20220720
  Serious: Yes (Other)
  Sender: FDA-Public Use
  Company Number: US-TAKEDA-2021TUS073022

PATIENT
  Sex: Female
  Weight: 77 kg

DRUGS (22)
  1. HUMAN IMMUNOGLOBULIN G [Suspect]
     Active Substance: HUMAN IMMUNOGLOBULIN G
     Indication: Immune system disorder
     Dosage: 450 MILLIGRAM/KILOGRAM, Q4WEEKS
     Route: 042
     Dates: start: 20211108
  2. HUMAN IMMUNOGLOBULIN G [Suspect]
     Active Substance: HUMAN IMMUNOGLOBULIN G
     Dosage: 450 MILLIGRAM/KILOGRAM, Q4WEEKS
     Route: 042
     Dates: start: 20211109
  3. HUMAN IMMUNOGLOBULIN G [Suspect]
     Active Substance: HUMAN IMMUNOGLOBULIN G
     Dosage: UNK
     Route: 065
     Dates: start: 20211115
  4. DIPHENHYDRAMINE [Concomitant]
     Active Substance: DIPHENHYDRAMINE
     Dosage: UNK
  5. TRELEGY ELLIPTA [Concomitant]
     Active Substance: FLUTICASONE FUROATE\UMECLIDINIUM BROMIDE\VILANTEROL TRIFENATATE
  6. SODIUM CHLORIDE [Concomitant]
     Active Substance: SODIUM CHLORIDE
  7. EPINEPHRINE [Concomitant]
     Active Substance: EPINEPHRINE
  8. LEVOFLOXACIN [Concomitant]
     Active Substance: LEVOFLOXACIN
  9. XOLAIR [Concomitant]
     Active Substance: OMALIZUMAB
  10. ACETAMINOPHEN [Concomitant]
     Active Substance: ACETAMINOPHEN
  11. PROAIR HFA [Concomitant]
     Active Substance: ALBUTEROL SULFATE
  12. VITAMIN D3 [Concomitant]
     Active Substance: CHOLECALCIFEROL
  13. VITAMIN C [Concomitant]
     Active Substance: ASCORBIC ACID
  14. CALCIUM [Concomitant]
     Active Substance: CALCIUM
  15. CETIRIZINE HCL [Concomitant]
     Active Substance: CETIRIZINE HYDROCHLORIDE
  16. MONTELUKAST SODIUM [Concomitant]
     Active Substance: MONTELUKAST SODIUM
  17. LIDOCAINE [Concomitant]
     Active Substance: LIDOCAINE
  18. DILTIAZEM [Concomitant]
     Active Substance: DILTIAZEM
  19. HERBALS [Concomitant]
     Active Substance: HERBALS
  20. Zinc lozenges [Concomitant]
  21. PROBIOTICS NOS [Concomitant]
     Active Substance: PROBIOTICS NOS
  22. METAMUCIL [Concomitant]
     Active Substance: PLANTAGO SEED
     Route: 065

REACTIONS (9)
  - Pneumonia [Recovering/Resolving]
  - Pneumonia bacterial [Unknown]
  - Upper respiratory tract infection [Unknown]
  - Sputum discoloured [Unknown]
  - Respiratory tract congestion [Unknown]
  - Cough [Unknown]
  - Dyspepsia [Unknown]
  - Atrioventricular block [Unknown]
  - Nausea [Unknown]
